FAERS Safety Report 4323108-8 (Version None)
Quarter: 2004Q1

REPORT INFORMATION
  Report Type: 
  Country: None (occurrence: None)
  Receive Date: 20040322
  Receipt Date: 20040303
  Transmission Date: 20041129
  Serious: Yes (Other)
  Sender: FDA-Public Use
  Company Number: 2004197300US

PATIENT
  Age: 70 Year
  Sex: Male
  Weight: 68 kg

DRUGS (2)
  1. CLEOCIN HCL [Suspect]
     Indication: TONSILLITIS
     Dosage: 300 MG, TID,
     Dates: start: 20031224, end: 20040101
  2. DILANTIN [Concomitant]

REACTIONS (14)
  - BACK PAIN [None]
  - BLOOD PRESSURE SYSTOLIC INCREASED [None]
  - DECREASED APPETITE [None]
  - DIARRHOEA [None]
  - EYE PAIN [None]
  - EYE SWELLING [None]
  - FATIGUE [None]
  - INFLAMMATION [None]
  - INSOMNIA [None]
  - KERATOCONJUNCTIVITIS SICCA [None]
  - RASH [None]
  - REACTION TO DRUG EXCIPIENT [None]
  - RHINORRHOEA [None]
  - SWELLING [None]
